FAERS Safety Report 5119631-9 (Version None)
Quarter: 2006Q4

REPORT INFORMATION
  Report Type: 
  Country: None (occurrence: None)
  Receive Date: 20061003
  Receipt Date: 20060927
  Transmission Date: 20070319
  Serious: Yes (Hospitalization)
  Sender: FDA-Public Use
  Company Number: CZ-GLAXOSMITHKLINE-B0440451A

PATIENT
  Age: 51 Year
  Sex: Male

DRUGS (6)
  1. AUGMENTIN [Suspect]
     Route: 048
     Dates: start: 20060718, end: 20060718
  2. TRAMADOL HCL [Concomitant]
     Dates: start: 20060718, end: 20060718
  3. ENAP [Concomitant]
  4. UNKNOWN NAME [Concomitant]
  5. UNKNOWN NAME [Concomitant]
  6. RHEFLUIN [Concomitant]

REACTIONS (4)
  - ERYTHEMA [None]
  - PERIORBITAL OEDEMA [None]
  - PHARYNGEAL OEDEMA [None]
  - RASH [None]
